FAERS Safety Report 9470205 (Version 2)
Quarter: 2015Q1

REPORT INFORMATION
  Report Type: Spontaneous
  Country: US (occurrence: US)
  Receive Date: 20130822
  Receipt Date: 20150325
  Transmission Date: 20150721
  Serious: Yes (Hospitalization, Other)
  Sender: FDA-Public Use
  Company Number: US-BAYER-2013-099034

PATIENT
  Sex: Female

DRUGS (2)
  1. ALEVE [Suspect]
     Active Substance: NAPROXEN SODIUM
     Indication: ARTHRALGIA
     Dosage: UNK
     Route: 048
  2. NAPROXEN. [Suspect]
     Active Substance: NAPROXEN
     Indication: ARTHRALGIA
     Dosage: 500 MG, UNK
     Dates: start: 2004

REACTIONS (8)
  - Hepatic cirrhosis [Unknown]
  - Glycolysis increased [Unknown]
  - Liver disorder [Unknown]
  - Hyperglycaemia [Unknown]
  - Gait disturbance [Unknown]
  - Hepatic failure [Unknown]
  - Liver injury [Unknown]
  - Seizure [Unknown]

NARRATIVE: CASE EVENT DATE: 201304
